FAERS Safety Report 19620352 (Version 1)
Quarter: 2021Q3

REPORT INFORMATION
  Report Type: Other
  Country: GR (occurrence: GR)
  Receive Date: 20210728
  Receipt Date: 20210728
  Transmission Date: 20211014
  Serious: Yes (Death, Other)
  Sender: FDA-Public Use
  Company Number: GR-ROCHE-2874735

PATIENT

DRUGS (1)
  1. BEVACIZUMAB. [Suspect]
     Active Substance: BEVACIZUMAB
     Indication: NEOPLASM MALIGNANT
     Route: 065

REACTIONS (13)
  - Candida infection [Unknown]
  - Herpes virus infection [Unknown]
  - Pneumonitis [Unknown]
  - Autoimmune disorder [Unknown]
  - Osteonecrosis of jaw [Unknown]
  - Oral pain [Unknown]
  - Mouth haemorrhage [Unknown]
  - Dysgeusia [Unknown]
  - Hepatitis [Fatal]
  - Thrombosis [Unknown]
  - Oral discomfort [Unknown]
  - Mouth swelling [Unknown]
  - Dry mouth [Unknown]
